FAERS Safety Report 24428664 (Version 2)
Quarter: 2024Q4

REPORT INFORMATION
  Report Type: Spontaneous
  Country: US (occurrence: US)
  Receive Date: 20241011
  Receipt Date: 20241202
  Transmission Date: 20250114
  Serious: No
  Sender: FRESENIUS KABI
  Company Number: US-FreseniusKabi-FK202414929

PATIENT
  Age: 22 Year
  Sex: Female
  Weight: 79.38 kg

DRUGS (2)
  1. ADALIMUMAB [Suspect]
     Active Substance: ADALIMUMAB
     Indication: Crohn^s disease
     Dosage: FORM: INJECTION, ROUTE: SUBCUTANEOUS?DOSAGE(DOSE AND FREQUENCY): 160 MG (SPLIT INTO 4 DOSES OF 40 MG
     Dates: start: 20241002, end: 20241002
  2. PREDNISONE [Concomitant]
     Active Substance: PREDNISONE
     Indication: Crohn^s disease
     Dosage: PO?(MANUFACTURER ASKED BUT UNKNOWN),(DAILY SCHEDULE: 40MG X 1 WEEK, 30MG X 1 WEEK, 20MG X 2 WEEKS, 1
     Dates: start: 2024

REACTIONS (4)
  - Accidental exposure to product [Unknown]
  - Incorrect dose administered by device [Unknown]
  - Injection site bruising [Unknown]
  - Injection site pain [Unknown]

NARRATIVE: CASE EVENT DATE: 20241002
